FAERS Safety Report 7461203-5 (Version None)
Quarter: 2011Q2

REPORT INFORMATION
  Report Type: 
  Country: None (occurrence: None)
  Receive Date: 20110505
  Receipt Date: 20110426
  Transmission Date: 20111010
  Serious: Yes (Hospitalization)
  Sender: FDA-Public Use
  Company Number: US-ASTRAZENECA-2011SE24230

PATIENT
  Sex: Female

DRUGS (2)
  1. INSULIN [Concomitant]
     Indication: TYPE 1 DIABETES MELLITUS
     Route: 058
     Dates: start: 20110101, end: 20110101
  2. SEROQUEL XR [Suspect]
     Indication: BIPOLAR I DISORDER
     Dosage: 60-400 MG
     Route: 048
     Dates: start: 20110101, end: 20110101

REACTIONS (3)
  - ASPIRATION [None]
  - OVERDOSE [None]
  - LUNG DISORDER [None]
